FAERS Safety Report 4280210-7 (Version None)
Quarter: 2004Q1

REPORT INFORMATION
  Report Type: 
  Country: None (occurrence: None)
  Receive Date: 20040128
  Receipt Date: 20040115
  Transmission Date: 20041129
  Serious: Yes (Other)
  Sender: FDA-Public Use
  Company Number: DE-GLAXOSMITHKLINE-D0042900A

PATIENT
  Age: 65 Year
  Sex: Female
  Weight: 172 kg

DRUGS (3)
  1. REQUIP [Suspect]
     Indication: RESTLESS LEGS SYNDROME
     Route: 048
     Dates: start: 20000101
  2. EUTHYROX [Concomitant]
     Indication: HYPOTHYROIDISM
     Dosage: 75MG PER DAY
     Route: 048
  3. VIOXX [Concomitant]
     Dosage: 12.5MG PER DAY
     Route: 048

REACTIONS (1)
  - SYNCOPE [None]
